FAERS Safety Report 5026561-X (Version None)
Quarter: 2006Q2

REPORT INFORMATION
  Report Type: 
  Country: None (occurrence: None)
  Receive Date: 20060615
  Receipt Date: 20060529
  Transmission Date: 20061013
  Serious: Yes (Hospitalization)
  Sender: FDA-Public Use
  Company Number: NL-ROCHE-449700

PATIENT
  Age: 64 Year
  Sex: Male

DRUGS (3)
  1. CAPECITABINE [Suspect]
     Dosage: ON DAYS 1-14 OF A 3-WEEK CYCLE.
     Route: 048
     Dates: start: 20060125
  2. AVASTIN [Suspect]
     Dosage: ON DAY 1 OF A 3-WEEK CYCLE.
     Route: 042
     Dates: start: 20060125
  3. OXALIPLATIN [Suspect]
     Dosage: ON DAY 1 OF A 3-WEEK CYCLE.
     Route: 042
     Dates: start: 20060125

REACTIONS (3)
  - DEHYDRATION [None]
  - DIARRHOEA [None]
  - MUCOSAL INFLAMMATION [None]
